FAERS Safety Report 7557362-6 (Version None)
Quarter: 2011Q2

REPORT INFORMATION
  Report Type: 
  Country: None (occurrence: None)
  Receive Date: 20110620
  Receipt Date: 20110606
  Transmission Date: 20111010
  Serious: Yes (Other)
  Sender: FDA-Public Use
  Company Number: PHHY2011BR50559

PATIENT
  Sex: Female
  Weight: 70 kg

DRUGS (1)
  1. DIOVAN HCT [Suspect]
     Indication: HYPERTENSION
     Dosage: 1 DF, A DAY
     Route: 048

REACTIONS (3)
  - HYPERTENSION [None]
  - SHOCK [None]
  - DISCOMFORT [None]
